FAERS Safety Report 4981264-2 (Version None)
Quarter: 2006Q1

REPORT INFORMATION
  Report Type: 
  Country: None (occurrence: None)
  Receive Date: 20060312
  Receipt Date: 20060329
  Transmission Date: 20060701
  Serious: No
  Sender: FDA-Public Use
  Company Number: 2006BH007222

PATIENT
  Age: 65 Year
  Sex: Female

DRUGS (2)
  1. TISSEEL VH KIT [Suspect]
     Dosage: 2 ML; 2X A DAY
     Dates: start: 20060329, end: 20060329
  2. NITROPASTE [Concomitant]

REACTIONS (2)
  - CYANOSIS [None]
  - PROCEDURAL COMPLICATION [None]
